FAERS Safety Report 7617732-4 (Version None)
Quarter: 2011Q3

REPORT INFORMATION
  Report Type: 
  Country: None (occurrence: None)
  Receive Date: 20110718
  Receipt Date: 20110713
  Transmission Date: 20111222
  Serious: Yes (Death, Other)
  Sender: FDA-Public Use
  Company Number: PHHY2011SE62992

PATIENT
  Age: 22 Year
  Sex: Male

DRUGS (2)
  1. HERBAL BLEND KRYPTON [Suspect]
  2. ALPRAZOLAM [Suspect]

REACTIONS (2)
  - TOXICITY TO VARIOUS AGENTS [None]
  - PULMONARY CONGESTION [None]
